FAERS Safety Report 12349230 (Version 1)
Quarter: 2016Q2

REPORT INFORMATION
  Report Type: Spontaneous
  Country: US (occurrence: US)
  Receive Date: 20160509
  Receipt Date: 20160509
  Transmission Date: 20160815
  Serious: No
  Sender: FDA-Public Use
  Company Number: US-ASTRAZENECA-2016SE35126

PATIENT
  Age: 23563 Day
  Sex: Female
  Weight: 102.1 kg

DRUGS (6)
  1. ONGLYZA [Suspect]
     Active Substance: SAXAGLIPTIN HYDROCHLORIDE
     Indication: TYPE 2 DIABETES MELLITUS
     Route: 048
     Dates: start: 20160329
  2. POTASSIUM [Concomitant]
     Active Substance: POTASSIUM
     Indication: PH URINE
     Route: 048
  3. ALLOPURINOL. [Concomitant]
     Active Substance: ALLOPURINOL
     Indication: BLOOD URIC ACID ABNORMAL
     Route: 048
  4. ATENOLOL. [Suspect]
     Active Substance: ATENOLOL
     Indication: HYPERTENSION
     Route: 048
  5. LISINOPRIL-HCTZ [Suspect]
     Active Substance: HYDROCHLOROTHIAZIDE\LISINOPRIL
     Indication: HYPERTENSION
     Route: 048
  6. METFORMIN [Concomitant]
     Active Substance: METFORMIN HYDROCHLORIDE

REACTIONS (1)
  - Blood glucose increased [Unknown]

NARRATIVE: CASE EVENT DATE: 20160330
